FAERS Safety Report 9915110 (Version 2)
Quarter: 2014Q2

REPORT INFORMATION
  Report Type: Report from Study
  Country: BE (occurrence: BE)
  Receive Date: 20140220
  Receipt Date: 20140421
  Transmission Date: 20141212
  Serious: Yes (Life-Threatening, Hospitalization)
  Sender: FDA-Public Use
  Company Number: BE-ASTRAZENECA-2014SE10751

PATIENT
  Age: 69 Year
  Sex: Male

DRUGS (8)
  1. TICAGRELOR [Suspect]
     Indication: ACUTE CORONARY SYNDROME
     Route: 048
     Dates: start: 20131224, end: 20131227
  2. ASA [Suspect]
     Indication: ACUTE CORONARY SYNDROME
     Route: 048
     Dates: start: 20131224
  3. PLAVIX [Concomitant]
     Dates: start: 20131228
  4. NOBITEN [Concomitant]
  5. CORUNO [Concomitant]
  6. INEGY [Concomitant]
     Dosage: 10/20
  7. ARIXTRA [Concomitant]
  8. GELOPLASMA [Concomitant]

REACTIONS (3)
  - Drug ineffective [Recovered/Resolved]
  - Acute myocardial infarction [Recovered/Resolved]
  - Ventricular fibrillation [Recovered/Resolved]
